FAERS Safety Report 23591675 (Version 2)
Quarter: 2024Q2

REPORT INFORMATION
  Report Type: Spontaneous
  Country: US (occurrence: US)
  Receive Date: 20240304
  Receipt Date: 20240430
  Transmission Date: 20240715
  Serious: No
  Sender: FDA-Public Use
  Company Number: US-SANOFI-01959879

PATIENT
  Age: 60 Year
  Sex: Female

DRUGS (1)
  1. RASBURICASE [Suspect]
     Active Substance: RASBURICASE
     Dosage: UNK

REACTIONS (1)
  - Skin laceration [Unknown]
